FAERS Safety Report 5004593-5 (Version None)
Quarter: 2006Q2

REPORT INFORMATION
  Report Type: 
  Country: None (occurrence: None)
  Receive Date: 20060512
  Receipt Date: 20060501
  Transmission Date: 20061013
  Serious: Yes (Death)
  Sender: FDA-Public Use
  Company Number: 224596

PATIENT
  Age: 79 Year
  Sex: Male
  Weight: 72.1 kg

DRUGS (9)
  1. AVASTIN [Suspect]
     Indication: PANCREATIC CARCINOMA
     Dosage: 10 MG/KG, DAYS 1 + 15, INTRAVENOUS
     Route: 042
     Dates: start: 20051025, end: 20060411
  2. GEMCITABINE [Suspect]
     Indication: PANCREATIC CARCINOMA
     Dosage: 1000 MG/M2, DAYS 1 + 15, INTRAVENOUS
     Route: 042
     Dates: start: 20051025, end: 20060411
  3. CISPLATIN [Suspect]
     Indication: PANCREATIC CARCINOMA
     Dosage: 20 MG/M2, DAYS 1 + 15, INTRAVENOUS
     Route: 042
     Dates: start: 20051025, end: 20060411
  4. FUROSEMIDE [Concomitant]
  5. PROCAINAMIDE [Concomitant]
  6. MEGACE [Concomitant]
  7. NITROPASTE (NITROGLYCERIN) [Concomitant]
  8. METOPROLOL TARTRATE [Concomitant]
  9. AMIODARONE HCL [Concomitant]

REACTIONS (10)
  - ANOREXIA [None]
  - ASTHENIA [None]
  - ATRIAL FLUTTER [None]
  - DYSPNOEA EXERTIONAL [None]
  - FALL [None]
  - FATIGUE [None]
  - HAEMATOCRIT DECREASED [None]
  - HAEMOGLOBIN DECREASED [None]
  - LOSS OF CONSCIOUSNESS [None]
  - TACHYCARDIA [None]
